FAERS Safety Report 16582696 (Version 1)
Quarter: 2019Q3

REPORT INFORMATION
  Report Type: Spontaneous
  Country: AR (occurrence: AR)
  Receive Date: 20190717
  Receipt Date: 20190717
  Transmission Date: 20191004
  Serious: Yes (Other)
  Sender: FDA-Public Use
  Company Number: AR-PFIZER INC-2019227529

PATIENT
  Age: 58 Year
  Sex: Female

DRUGS (1)
  1. IBRANCE [Suspect]
     Active Substance: PALBOCICLIB
     Indication: BREAST CANCER METASTATIC
     Dosage: 125 MG, CYCLIC (DAILY, SCHEME 3X1; 21 DAYS ON AND 7 DAYS OFF)
     Dates: start: 20170801, end: 20190524

REACTIONS (6)
  - Anaemia [Unknown]
  - Facial paralysis [Unknown]
  - Visual impairment [Unknown]
  - Eye disorder [Unknown]
  - Yellow skin [Not Recovered/Not Resolved]
  - Optic nerve disorder [Unknown]

NARRATIVE: CASE EVENT DATE: 2019
